FAERS Safety Report 21206453 (Version 1)
Quarter: 2022Q3

REPORT INFORMATION
  Report Type: Spontaneous
  Country: US (occurrence: US)
  Receive Date: 20220812
  Receipt Date: 20220812
  Transmission Date: 20221026
  Serious: No
  Sender: FDA-Public Use
  Company Number: US-GSKCCFUS-Case-01459975_AE-83616

PATIENT
  Sex: Female

DRUGS (3)
  1. BREO ELLIPTA [Interacting]
     Active Substance: FLUTICASONE FUROATE\VILANTEROL TRIFENATATE
     Indication: Dyspnoea
     Dosage: UNK
  2. TRELEGY ELLIPTA [Suspect]
     Active Substance: FLUTICASONE FUROATE\UMECLIDINIUM BROMIDE\VILANTEROL TRIFENATATE
     Dosage: UNK
  3. FLUTICASONE FUROATE [Concomitant]
     Active Substance: FLUTICASONE FUROATE
     Indication: Dyspnoea
     Dosage: UNK

REACTIONS (6)
  - Non-cardiac chest pain [Unknown]
  - Dyspnoea [Not Recovered/Not Resolved]
  - Overdose [Unknown]
  - Drug ineffective [Unknown]
  - Labelled drug-drug interaction medication error [Unknown]
  - Product dose omission issue [Unknown]

NARRATIVE: CASE EVENT DATE: 20220809
